FAERS Safety Report 25263617 (Version 2)
Quarter: 2025Q2

REPORT INFORMATION
  Report Type: Spontaneous
  Country: CN (occurrence: CN)
  Receive Date: 20250502
  Receipt Date: 20250508
  Transmission Date: 20250717
  Serious: No
  Sender: ALEXION PHARMACEUTICALS
  Company Number: CN-AstraZeneca-CH-00857399A

PATIENT
  Age: 53 Year
  Weight: 51 kg

DRUGS (2)
  1. TAGRISSO [Concomitant]
     Active Substance: OSIMERTINIB
     Route: 065
  2. SAVOLITINIB [Suspect]
     Active Substance: SAVOLITINIB
     Indication: Lung adenocarcinoma
     Dosage: 400 MILLIGRAM, QD

REACTIONS (7)
  - Lacrimation increased [Unknown]
  - Abdominal pain upper [Unknown]
  - Rhinorrhoea [Unknown]
  - Yawning [Unknown]
  - Oesophageal discomfort [Unknown]
  - Nausea [Unknown]
  - Off label use [Unknown]
